FAERS Safety Report 22352376 (Version 1)
Quarter: 2023Q2

REPORT INFORMATION
  Report Type: Spontaneous
  Country: AR (occurrence: AR)
  Receive Date: 20230522
  Receipt Date: 20230522
  Transmission Date: 20230721
  Serious: Yes (Other)
  Sender: FDA-Public Use
  Company Number: AR-SA-2019SA265565

PATIENT

DRUGS (2)
  1. LARONIDASE [Suspect]
     Active Substance: LARONIDASE
     Indication: Product used for unknown indication
     Dosage: 3 BOTTLES IN 85/DOSES 3, UNK
     Route: 041
     Dates: start: 20190920, end: 20190923
  2. LARONIDASE [Suspect]
     Active Substance: LARONIDASE
     Dosage: 8.7 G, QW
     Route: 041

REACTIONS (8)
  - Pasteurella infection [Unknown]
  - Influenza [Recovering/Resolving]
  - Pyrexia [Recovering/Resolving]
  - Respiratory symptom [Unknown]
  - Nasal congestion [Unknown]
  - Cough [Unknown]
  - Nasopharyngitis [Unknown]
  - Viral infection [Unknown]

NARRATIVE: CASE EVENT DATE: 20190901
